FAERS Safety Report 8847482 (Version 2)
Quarter: 2012Q4

REPORT INFORMATION
  Report Type: 
  Country: US (occurrence: US)
  Receive Date: 20121018
  Receipt Date: 20121224
  Transmission Date: 20130627
  Serious: No
  Sender: FDA-Public Use
  Company Number: US-ASTRAZENECA-2012SE75719

PATIENT
  Age: 70 Year
  Sex: Female
  Weight: 72.6 kg

DRUGS (17)
  1. SYMBICORT PMDI [Suspect]
     Dosage: 160/4.5 2 PUFFS BID
     Route: 055
  2. SYMBICORT PMDI [Suspect]
     Dosage: 80/4.5MCG,2 PUFFS TWICE DAILY
     Route: 055
  3. METFORMIN [Suspect]
     Route: 048
  4. OMEPRAZOLE [Suspect]
     Route: 048
  5. TAMBACOR [Concomitant]
  6. PROAIR [Concomitant]
  7. FLONASE [Concomitant]
  8. LEVOTHYROXINE [Concomitant]
  9. LOPRESSOR [Concomitant]
  10. MACRODANTIN [Concomitant]
  11. WARFARIN [Concomitant]
  12. RANITIDINE [Concomitant]
  13. LEVAMIR [Concomitant]
  14. OMEGA 3 [Concomitant]
  15. VIT D [Concomitant]
  16. IMMODIUM [Concomitant]
  17. OSCAL [Concomitant]

REACTIONS (3)
  - Dyspnoea [Unknown]
  - Drug hypersensitivity [Unknown]
  - Drug dose omission [Unknown]
